FAERS Safety Report 21438601 (Version 1)
Quarter: 2022Q4

REPORT INFORMATION
  Report Type: Spontaneous
  Country: DE (occurrence: DE)
  Receive Date: 20221011
  Receipt Date: 20221011
  Transmission Date: 20230112
  Serious: No
  Sender: FDA-Public Use
  Company Number: DE-ALKEM LABORATORIES LIMITED-DE-ALKEM-2022-07854

PATIENT
  Sex: Male
  Weight: 65 kg

DRUGS (1)
  1. IBUPROFEN [Suspect]
     Active Substance: IBUPROFEN
     Indication: Noninfective sialoadenitis
     Dosage: 2400 MILLIGRAM, EVERY 1 DAY
     Route: 065

REACTIONS (6)
  - Ocular discomfort [Unknown]
  - Photophobia [Unknown]
  - Abdominal pain upper [Unknown]
  - Diarrhoea [Unknown]
  - Blister [Unknown]
  - Fatigue [Unknown]
